FAERS Safety Report 23398675 (Version 1)
Quarter: 2024Q1

REPORT INFORMATION
  Report Type: Spontaneous
  Country: PT (occurrence: PT)
  Receive Date: 20240112
  Receipt Date: 20240112
  Transmission Date: 20240410
  Serious: Yes (Death, Other)
  Sender: FDA-Public Use
  Company Number: PT-AMGEN-PRTSP2024004436

PATIENT

DRUGS (1)
  1. PROLIA [Suspect]
     Active Substance: DENOSUMAB
     Indication: Osteoporosis
     Dosage: UNK
     Route: 058

REACTIONS (7)
  - Death [Fatal]
  - Hip fracture [Unknown]
  - Lower limb fracture [Unknown]
  - Spinal fracture [Unknown]
  - Wrist fracture [Unknown]
  - Humerus fracture [Unknown]
  - Upper limb fracture [Unknown]
